FAERS Safety Report 5843283-3 (Version None)
Quarter: 2008Q3

REPORT INFORMATION
  Report Type: 
  Country: None (occurrence: None)
  Receive Date: 20080813
  Receipt Date: 20080627
  Transmission Date: 20090109
  Serious: No
  Sender: FDA-Public Use
  Company Number: US-BAYER-200812848BCC

PATIENT
  Age: 17 Year
  Sex: Male
  Weight: 95 kg

DRUGS (2)
  1. ALEVE (CAPLET) [Suspect]
     Indication: PAIN IN EXTREMITY
     Dosage: TOTAL DAILY DOSE: 1100 MG  UNIT DOSE: 220 MG
     Route: 048
     Dates: start: 20080627
  2. ALBUTEROL [Concomitant]
     Route: 055

REACTIONS (1)
  - NO ADVERSE EVENT [None]
